FAERS Safety Report 24170626 (Version 1)
Quarter: 2024Q3

REPORT INFORMATION
  Report Type: Spontaneous
  Country: US (occurrence: None)
  Receive Date: 20240802
  Receipt Date: 20240802
  Transmission Date: 20241016
  Serious: Yes (unspecified)
  Sender: Public
  Company Number: None

PATIENT
  Age: 84 Year
  Sex: Male
  Weight: 84.15 kg

DRUGS (1)
  1. AMOXICILLIN\CLAVULANATE POTASSIUM [Suspect]
     Active Substance: AMOXICILLIN\CLAVULANATE POTASSIUM
     Indication: Animal bite
     Dosage: 5 TABLETS DAILY ORAL
     Route: 048
     Dates: start: 20240730, end: 20240730

REACTIONS (4)
  - Pruritus [None]
  - Nausea [None]
  - Vomiting [None]
  - Rash [None]

NARRATIVE: CASE EVENT DATE: 20240731
